FAERS Safety Report 4730382-2 (Version None)
Quarter: 2005Q3

REPORT INFORMATION
  Report Type: 
  Country: None (occurrence: None)
  Receive Date: 20050801
  Receipt Date: 20050725
  Transmission Date: 20060218
  Serious: Yes (Life-Threatening, Hospitalization, Other)
  Sender: FDA-Public Use
  Company Number: 2005PK01351

PATIENT
  Age: 74 Year
  Sex: Female

DRUGS (4)
  1. QUETIAPINE [Suspect]
     Route: 048
  2. DIFIPERONE [Suspect]
     Route: 048
  3. VALPROIC ACID [Suspect]
     Route: 048
  4. ZOPICLONE [Suspect]
     Route: 048

REACTIONS (3)
  - COMA [None]
  - MIOSIS [None]
  - TACHYCARDIA [None]
